FAERS Safety Report 6677695-5 (Version None)
Quarter: 2010Q2

REPORT INFORMATION
  Report Type: 
  Country: None (occurrence: None)
  Receive Date: 20100412
  Receipt Date: 20100317
  Transmission Date: 20101027
  Serious: No
  Sender: FDA-Public Use
  Company Number: US-ALEXION-A201000311

PATIENT
  Sex: Male

DRUGS (7)
  1. SOLIRIS [Suspect]
     Indication: PAROXYSMAL NOCTURNAL HAEMOGLOBINURIA
     Dosage: 600 MG, QWK
     Route: 042
     Dates: start: 20091202, end: 20091223
  2. SOLIRIS [Suspect]
     Dosage: 900 MG,
     Route: 042
     Dates: start: 20091230
  3. PREDNISOLONE [Concomitant]
     Dosage: 7 MG, QD
  4. PREDNISOLONE [Concomitant]
     Dosage: 5 MG, QD
  5. COUMADIN [Concomitant]
     Dosage: UNK
  6. TOPROL-XL [Concomitant]
     Dosage: UNK
  7. FOLIC ACID [Concomitant]
     Dosage: UNK

REACTIONS (2)
  - CHEST PAIN [None]
  - DYSPNOEA [None]
